FAERS Safety Report 5946893-8 (Version None)
Quarter: 2008Q4

REPORT INFORMATION
  Report Type: 
  Country: None (occurrence: None)
  Receive Date: 20081107
  Receipt Date: 20081107
  Transmission Date: 20090506
  Serious: Yes (Life-Threatening, Hospitalization)
  Sender: FDA-Public Use
  Company Number: None

PATIENT
  Sex: Male
  Weight: 63.1 kg

DRUGS (1)
  1. CO-TRIMOXAZOLE [Suspect]
     Indication: CELLULITIS
     Dates: start: 20080515, end: 20080615

REACTIONS (6)
  - EPISTAXIS [None]
  - FATIGUE [None]
  - INCREASED TENDENCY TO BRUISE [None]
  - MACROCYTOSIS [None]
  - PANCYTOPENIA [None]
  - PETECHIAE [None]
